FAERS Safety Report 21307429 (Version 1)
Quarter: 2022Q3

REPORT INFORMATION
  Report Type: Other
  Country: US (occurrence: None)
  Receive Date: 20220908
  Receipt Date: 20220908
  Transmission Date: 20221027
  Serious: Yes (Other)
  Sender: FDA-Public Use
  Company Number: US-ROCHE-2523536

PATIENT
  Age: 47 Year
  Sex: Female
  Weight: 65.830 kg

DRUGS (13)
  1. OCREVUS [Suspect]
     Active Substance: OCRELIZUMAB
     Indication: Relapsing-remitting multiple sclerosis
     Dosage: ONGOING YES, DATE OF TREATMENT: 29-JAN-2021, 20-JUL-2020, 30-JAN-2020, 03-JUL-2019, 03-JAN-2019,?20-
     Route: 042
     Dates: start: 20171220
  2. TOBRAMYCIN AND DEXAMETHASONE [Suspect]
     Active Substance: DEXAMETHASONE\TOBRAMYCIN
     Indication: Ocular hyperaemia
     Dosage: DOSE WAS 1 GTT, IN THE LEFT EYE;0.03%/1%
     Route: 047
     Dates: start: 20190510
  3. GABAPENTIN [Concomitant]
     Active Substance: GABAPENTIN
     Indication: Muscle spasticity
     Dosage: 2 CAPSULES THREE TIMES A DAY
     Route: 048
  4. AMITRIPTYLINE [Concomitant]
     Active Substance: AMITRIPTYLINE
     Indication: Migraine
     Dosage: 2 TABLETS AT BEDTIME
     Route: 048
  5. BENICAR HCT [Concomitant]
     Active Substance: HYDROCHLOROTHIAZIDE\OLMESARTAN MEDOXOMIL
     Indication: Blood pressure measurement
     Dosage: 40MG/12.5MG
     Route: 048
     Dates: start: 201808
  6. MAGNESIUM [Concomitant]
     Active Substance: MAGNESIUM
     Dosage: 1 AT BEDTIME
     Route: 048
  7. CRANBERRY [Concomitant]
     Active Substance: CRANBERRY
     Indication: Cystitis interstitial
     Dosage: 2 IN AM
     Route: 048
  8. ADVIL LIQUI-GELS [Concomitant]
     Active Substance: IBUPROFEN
     Indication: Migraine
     Dosage: AS NEEDED UP TO 6 PER DAY, USUALLY 2 TO 3 TAB PER
     Route: 048
  9. AZO [Concomitant]
     Active Substance: PHENAZOPYRIDINE HYDROCHLORIDE
     Indication: Cystitis interstitial
     Dosage: ONLY FOR 3 DAYS
     Route: 048
     Dates: start: 201903
  10. METHOTREXATE [Concomitant]
     Active Substance: METHOTREXATE
     Indication: Neurosarcoidosis
     Route: 048
     Dates: start: 201706
  11. METHOTREXATE [Concomitant]
     Active Substance: METHOTREXATE
     Route: 048
     Dates: start: 202203
  12. FOLIC ACID [Concomitant]
     Active Substance: FOLIC ACID
     Route: 048
     Dates: start: 201706
  13. FOLIC ACID [Concomitant]
     Active Substance: FOLIC ACID
     Route: 048

REACTIONS (21)
  - Bone neoplasm [Not Recovered/Not Resolved]
  - Hypertension [Recovered/Resolved]
  - Ocular hyperaemia [Recovered/Resolved]
  - Cystitis interstitial [Not Recovered/Not Resolved]
  - Intraocular pressure increased [Recovered/Resolved]
  - Vitamin B12 decreased [Unknown]
  - Eye irritation [Recovered/Resolved]
  - Hypoaesthesia [Unknown]
  - Regurgitation [Not Recovered/Not Resolved]
  - Neurosarcoidosis [Not Recovered/Not Resolved]
  - Dysphonia [Unknown]
  - Oropharyngeal discomfort [Unknown]
  - Throat irritation [Unknown]
  - Headache [Recovered/Resolved]
  - Cough [Recovered/Resolved]
  - Erythema [Recovered/Resolved]
  - Aspergillus infection [Not Recovered/Not Resolved]
  - Burns second degree [Recovered/Resolved]
  - Blister [Recovered/Resolved]
  - Photosensitivity reaction [Recovered/Resolved]
  - Lip infection [Unknown]

NARRATIVE: CASE EVENT DATE: 20180601
